FAERS Safety Report 6860610-9 (Version None)
Quarter: 2010Q3

REPORT INFORMATION
  Report Type: 
  Country: None (occurrence: None)
  Receive Date: 20100720
  Receipt Date: 20100715
  Transmission Date: 20110219
  Serious: Yes (Other)
  Sender: FDA-Public Use
  Company Number: FR-ROCHE-715664

PATIENT
  Sex: Female

DRUGS (8)
  1. ROCEPHIN [Suspect]
     Route: 058
     Dates: start: 20091210, end: 20091218
  2. DURAGESIC-100 [Concomitant]
     Indication: PAIN
     Dosage: START DATE: LONG TERM, STRENGTH: 12 MCG/HOUR
     Route: 062
  3. DOLIPRANE [Concomitant]
     Indication: PAIN
     Dosage: START DATE: LONG TERM
     Route: 048
  4. EMLA [Concomitant]
     Dosage: FREQUENCY: BEFORE EACH INJECTION
     Route: 061
     Dates: start: 20091210, end: 20091218
  5. SODIUM BICARBONATE [Concomitant]
     Dosage: START DATE: LONG TERM
     Route: 002
  6. DEXTROSE [Concomitant]
     Indication: FLUID REPLACEMENT
     Dosage: REPORTED AS GLUCOSE 5 %
     Route: 058
  7. DIFFU K [Concomitant]
     Indication: HYPOKALAEMIA
     Route: 048
     Dates: start: 20091207, end: 20091217
  8. SMECTA [Concomitant]
     Indication: DIARRHOEA
     Dosage: LONG TERM TREATMENT
     Route: 048

REACTIONS (2)
  - INJECTION SITE NECROSIS [None]
  - SKIN NECROSIS [None]
